FAERS Safety Report 8611767-0 (Version None)
Quarter: 2012Q3

REPORT INFORMATION
  Report Type: 
  Country: None (occurrence: None)
  Receive Date: 20120822
  Receipt Date: 20120814
  Transmission Date: 20120928
  Serious: Yes (Hospitalization, Other)
  Sender: FDA-Public Use
  Company Number: US-BAYER-2012-040008

PATIENT
  Age: 48 Year
  Sex: Female

DRUGS (7)
  1. LEXAPRO [Concomitant]
     Dosage: 20 MG/DAILY
  2. BENICAR [Concomitant]
     Dosage: 20 MG, DAILY
  3. FISH OIL [Concomitant]
     Dosage: DAILY
  4. YAZ [Suspect]
     Indication: MENORRHAGIA
     Dosage: UNK
     Dates: start: 20100201
  5. LORAZEPAM [Concomitant]
     Dosage: 1 MG, UNK
  6. VITAMIN D [Concomitant]
     Dosage: 50,000 UNITS/WEEKLY
  7. FERROUS SULFATE TAB [Concomitant]
     Dosage: DAILY

REACTIONS (4)
  - DEEP VEIN THROMBOSIS [None]
  - INJURY [None]
  - PULMONARY EMBOLISM [None]
  - PAIN [None]
